FAERS Safety Report 23035276 (Version 1)
Quarter: 2023Q4

REPORT INFORMATION
  Report Type: Spontaneous
  Country: US (occurrence: US)
  Receive Date: 20231005
  Receipt Date: 20231005
  Transmission Date: 20240109
  Serious: No
  Sender: FDA-Public Use
  Company Number: US-BRISTOL-MYERS SQUIBB COMPANY-2023-140619

PATIENT
  Age: 88 Year
  Sex: Male
  Weight: 94.35 kg

DRUGS (1)
  1. ELIQUIS [Suspect]
     Active Substance: APIXABAN
     Indication: Atrial fibrillation
     Dosage: DOSE : UNAVAILABLE;     FREQ : 1 IN THE MORNING AND 1 AT NIGHT
     Route: 048

REACTIONS (1)
  - Treatment noncompliance [Unknown]
